FAERS Safety Report 6407212-6 (Version None)
Quarter: 2009Q4

REPORT INFORMATION
  Report Type: 
  Country: None (occurrence: None)
  Receive Date: 20091020
  Receipt Date: 20090917
  Transmission Date: 20100525
  Serious: No
  Sender: FDA-Public Use
  Company Number: US-BAYER-200933941NA

PATIENT
  Age: 17 Year
  Sex: Female

DRUGS (3)
  1. MIRENA [Suspect]
     Indication: CONTRACEPTION
     Dosage: CONTINUOUS DELIVERY
     Route: 015
     Dates: start: 20090916
  2. CYTOTEC [Concomitant]
     Indication: OBSTETRICAL PROCEDURE
     Dosage: GIVEN PRIOR TO INSERTION TO DIALATE CERVIX.
  3. TRASIDONE [Concomitant]

REACTIONS (1)
  - UTERINE CONTRACTIONS ABNORMAL [None]
